FAERS Safety Report 19293269 (Version 1)
Quarter: 2021Q2

REPORT INFORMATION
  Report Type: Spontaneous
  Country: US (occurrence: US)
  Receive Date: 20210523
  Receipt Date: 20210523
  Transmission Date: 20210717
  Serious: No
  Sender: FDA-Public Use
  Company Number: None

PATIENT
  Age: 49 Year
  Sex: Female
  Weight: 99.9 kg

DRUGS (14)
  1. OXYBUTYNIN 5 MG TAB [Concomitant]
  2. VENLAFAXINE 150 MG CAP [Concomitant]
  3. CALCIUM 500/100/40 TAB [Concomitant]
  4. ASPIRIN 325 MG TAB [Concomitant]
  5. ONE A DAY WOMENS [Concomitant]
  6. OMEPRAZOLE 40 MG CAP [Concomitant]
  7. TAMOXIFEN 20 MG TAB [Concomitant]
  8. ARIPRAZOLE 30 MG TAB [Concomitant]
  9. DEXAMETHASONE 2 MG TAB [Concomitant]
  10. MARIJUANA [Concomitant]
     Active Substance: CANNABIS SATIVA SUBSP. INDICA TOP
  11. SIMVASTATIN 20 MG TAB [Concomitant]
  12. IBRANCE [Suspect]
     Active Substance: PALBOCICLIB
     Indication: BREAST CANCER
     Route: 048
  13. FASLODEX 250/5 [Concomitant]
  14. GABAPENTIN 100 MG CAP [Concomitant]

REACTIONS (2)
  - Drug ineffective [None]
  - Pulmonary mass [None]
